FAERS Safety Report 17837514 (Version 2)
Quarter: 2025Q4

REPORT INFORMATION
  Report Type: Spontaneous
  Country: US (occurrence: US)
  Receive Date: 20200528
  Receipt Date: 20251205
  Transmission Date: 20260117
  Serious: Yes (Hospitalization, Other)
  Sender: PURDUE
  Company Number: US-NAPPMUNDI-USA-2020-0153338

PATIENT
  Age: 41 Year
  Sex: Male
  Weight: 90.7 kg

DRUGS (7)
  1. OXYCONTIN [Suspect]
     Active Substance: OXYCODONE HYDROCHLORIDE
     Indication: Product used for unknown indication
     Dosage: UNK
     Route: 048
     Dates: start: 200606, end: 201508
  2. DILAUDID [Suspect]
     Active Substance: HYDROMORPHONE HYDROCHLORIDE
     Indication: Product used for unknown indication
     Dosage: UNK
     Route: 048
     Dates: start: 200606, end: 201508
  3. OXYCODONE HYDROCHLORIDE [Suspect]
     Active Substance: OXYCODONE HYDROCHLORIDE
     Indication: Pain
     Dosage: 30 MILLIGRAM, TID (TAKE 1 TABLET BY MOUTH), (NINETY PILLS)
     Route: 048
     Dates: start: 20151214
  4. OXYCODONE HYDROCHLORIDE [Suspect]
     Active Substance: OXYCODONE HYDROCHLORIDE
     Dosage: 30 MILLIGRAM, TID (TAKE 1 TABLET BY MOUTH), (NINETY PILLS)
     Route: 048
     Dates: start: 20150824, end: 20160104
  5. OXYCODONE HYDROCHLORIDE [Suspect]
     Active Substance: OXYCODONE HYDROCHLORIDE
     Dosage: 30 MILLIGRAM, TID  (TAKE 1 TABLET BY MOUTH), (NINETY PILLS)
     Route: 048
     Dates: start: 20150921, end: 20151019
  6. OXYCODONE HYDROCHLORIDE [Suspect]
     Active Substance: OXYCODONE HYDROCHLORIDE
     Dosage: 30 MILLIGRAM, TID  (TAKE 1 TABLET BY MOUTH), (NINETY PILLS)
     Route: 048
     Dates: start: 20151019, end: 20151116
  7. ACETAMINOPHEN\OXYCODONE HYDROCHLORIDE [Suspect]
     Active Substance: ACETAMINOPHEN\OXYCODONE HYDROCHLORIDE
     Indication: Product used for unknown indication
     Dosage: 5-325 MG, 1 TABLET, BID (60 TABLET)
     Route: 048
     Dates: start: 20150615, end: 20160303

REACTIONS (7)
  - Drug dependence [Unknown]
  - Overdose [Unknown]
  - Injury [Unknown]
  - Quality of life decreased [Unknown]
  - Pain in extremity [Unknown]
  - Xanthelasma [Unknown]
  - Medical device pain [Unknown]

NARRATIVE: CASE EVENT DATE: 20150610
